FAERS Safety Report 7023578-0 (Version None)
Quarter: 2010Q3

REPORT INFORMATION
  Report Type: 
  Country: None (occurrence: None)
  Receive Date: 20100930
  Receipt Date: 20100930
  Transmission Date: 20110219
  Serious: Yes (Life-Threatening, Hospitalization, Disabling)
  Sender: FDA-Public Use
  Company Number: None

PATIENT
  Sex: Male
  Weight: 104.3273 kg

DRUGS (1)
  1. NITROFURMAC 100 MG CAP [Suspect]
     Indication: BLADDER CATHETERISATION
     Dosage: 100 MG DAILY ORAL
     Route: 048
     Dates: start: 20060919, end: 20100720

REACTIONS (5)
  - CHEST PAIN [None]
  - COLLAPSE OF LUNG [None]
  - DYSPNOEA [None]
  - PAIN [None]
  - WHEEZING [None]
